FAERS Safety Report 15135301 (Version 70)
Quarter: 2024Q2

REPORT INFORMATION
  Report Type: Spontaneous
  Country: IL (occurrence: IL)
  Receive Date: 20180712
  Receipt Date: 20240620
  Transmission Date: 20240715
  Serious: Yes (Hospitalization, Other)
  Sender: FDA-Public Use
  Company Number: IL-PFIZER INC-2018276379

PATIENT
  Age: 72 Year
  Sex: Male

DRUGS (32)
  1. ELELYSO [Suspect]
     Active Substance: TALIGLUCERASE ALFA
     Indication: Gaucher^s disease
     Dosage: 2600IU/2800IU ONCE IN 3 WEEKS
     Route: 042
     Dates: start: 20160301
  2. ELELYSO [Suspect]
     Active Substance: TALIGLUCERASE ALFA
     Dosage: 2800/2600 UNITS, ONCE EVERY 3 WEEKS
     Route: 042
  3. ELELYSO [Suspect]
     Active Substance: TALIGLUCERASE ALFA
     Dosage: UNK
     Route: 042
  4. ELELYSO [Suspect]
     Active Substance: TALIGLUCERASE ALFA
     Dosage: 2800/2600 UNITS, ONCE EVERY 3 WEEKS
     Route: 042
  5. ELELYSO [Suspect]
     Active Substance: TALIGLUCERASE ALFA
     Dosage: 2800/2600 UNITS, ONCE EVERY 3 WEEKS
     Route: 042
  6. ELELYSO [Suspect]
     Active Substance: TALIGLUCERASE ALFA
     Dosage: 2800/2600 UNITS, ONCE EVERY 3 WEEKS
     Route: 042
  7. ELELYSO [Suspect]
     Active Substance: TALIGLUCERASE ALFA
     Dosage: 14/13 VIALS ONCE EVERY 3 WEEKS
     Route: 042
  8. ELELYSO [Suspect]
     Active Substance: TALIGLUCERASE ALFA
     Dosage: 2600/2800 UNITS ONCE IN 3 WEEKS
     Route: 042
  9. ELELYSO [Suspect]
     Active Substance: TALIGLUCERASE ALFA
     Dosage: 2600/2800 UNITS ONCE IN 3 WEEKS
     Route: 042
  10. ELELYSO [Suspect]
     Active Substance: TALIGLUCERASE ALFA
     Dosage: 2600/2800 UNITS ONCE IN 3 WEEKS
     Route: 042
  11. ELELYSO [Suspect]
     Active Substance: TALIGLUCERASE ALFA
     Dosage: 2600/2800 UNITS ONCE IN 3 WEEKS
     Route: 042
  12. ELELYSO [Suspect]
     Active Substance: TALIGLUCERASE ALFA
     Dosage: 2600/2800 UNITS ONCE IN 3 WEEKS
     Route: 042
  13. ELELYSO [Suspect]
     Active Substance: TALIGLUCERASE ALFA
     Dosage: 2600/2800 UNITS ONCE IN 3 WEEKS
     Route: 042
     Dates: start: 20211227
  14. ELELYSO [Suspect]
     Active Substance: TALIGLUCERASE ALFA
     Dosage: 13/14 VIALS ONCE IN THREE WEEKS
     Route: 042
  15. ELELYSO [Suspect]
     Active Substance: TALIGLUCERASE ALFA
     Dosage: 13/14 VIALS ONCE IN THREE WEEKS
     Route: 042
  16. ELELYSO [Suspect]
     Active Substance: TALIGLUCERASE ALFA
     Dosage: 14V/13V-3/WEEKS - 2800IU/2600IU
     Route: 042
     Dates: start: 20230622
  17. ELELYSO [Suspect]
     Active Substance: TALIGLUCERASE ALFA
     Dosage: 14V/13V-3/WEEKS - 2800IU/2600IU
     Route: 042
     Dates: start: 20230914
  18. ELELYSO [Suspect]
     Active Substance: TALIGLUCERASE ALFA
     Dosage: 13/14 VIALS -ONCE EVERY 3 WEEKS
     Route: 042
     Dates: start: 20231018
  19. ELELYSO [Suspect]
     Active Substance: TALIGLUCERASE ALFA
     Dosage: 14V/13V-3/WEEKS - 2800IU/2600IU
     Route: 042
     Dates: start: 20240402
  20. ELELYSO [Suspect]
     Active Substance: TALIGLUCERASE ALFA
     Dosage: 14V/13V 3/WEEKS 2800IU/2600IU
     Dates: start: 20240522
  21. ELELYSO [Suspect]
     Active Substance: TALIGLUCERASE ALFA
     Dosage: 14V/13V 3/WEEKS 2800IU/2600IU
     Dates: start: 20240616
  22. BISOPROLOL FUMARATE [Concomitant]
     Active Substance: BISOPROLOL FUMARATE
     Dosage: 2.5 MGX1
     Dates: start: 20220306
  23. DUTASTERIDE\TAMSULOSIN [Concomitant]
     Active Substance: DUTASTERIDE\TAMSULOSIN
     Dosage: 1 CAPX1
     Dates: start: 20220309
  24. ELIQUIS [Concomitant]
     Active Substance: APIXABAN
     Indication: Atrial fibrillation
     Dosage: 5 MGX2
     Dates: start: 20220310
  25. ENSURE [Concomitant]
     Active Substance: AMINO ACIDS\DEXTROSE\ELECTROLYTES NOS\SOYBEAN OIL\VITAMINS
     Dosage: 220 MLX2
     Dates: start: 20220306
  26. FUROSEMIDE [Concomitant]
     Active Substance: FUROSEMIDE
     Dosage: 40 MGX1
     Dates: start: 20220311, end: 20220320
  27. LIPITOR [Concomitant]
     Active Substance: ATORVASTATIN CALCIUM
     Dosage: 40 MGX1
     Dates: start: 20220307
  28. MAG CITRATE [Concomitant]
     Dosage: 1 TAB X2
     Dates: start: 20220310
  29. MIRO [MIRTAZAPINE] [Concomitant]
     Dosage: 45 MGX1
     Dates: start: 20220306
  30. OMEPRA [Concomitant]
     Dosage: 20 MGX1
     Dates: start: 20220306
  31. RAMIPRIL [Concomitant]
     Active Substance: RAMIPRIL
     Dosage: 2.5 MGX1
     Dates: start: 20220306
  32. OXAZEPAM [Concomitant]
     Active Substance: OXAZEPAM
     Dosage: 10 MGX1
     Dates: start: 20220306

REACTIONS (50)
  - Acute myocardial infarction [Unknown]
  - Intestinal perforation [Unknown]
  - Cerebrovascular accident [Unknown]
  - Hemiplegia [Unknown]
  - Confusional state [Unknown]
  - Delusion [Unknown]
  - Pyrexia [Unknown]
  - Cholecystitis infective [Unknown]
  - Constipation [Recovering/Resolving]
  - Ocular neoplasm [Unknown]
  - Nasal cavity cancer [Unknown]
  - Hypertension [Unknown]
  - Heart rate increased [Unknown]
  - Precancerous skin lesion [Unknown]
  - Haemorrhage urinary tract [Unknown]
  - Nephrolithiasis [Recovered/Resolved]
  - Hemiparesis [Unknown]
  - Postoperative wound infection [Recovering/Resolving]
  - Urinary retention [Recovered/Resolved]
  - Delirium [Unknown]
  - Speech disorder [Unknown]
  - Erythema [Recovering/Resolving]
  - Chest pain [Unknown]
  - Burning sensation [Recovering/Resolving]
  - Anal fissure [Unknown]
  - Somnolence [Unknown]
  - Haemoglobin increased [Unknown]
  - Treatment noncompliance [Unknown]
  - Urinary bladder polyp [Unknown]
  - Ocular hyperaemia [Unknown]
  - Lacrimation increased [Unknown]
  - Abnormal sensation in eye [Unknown]
  - Pain in extremity [Unknown]
  - Muscular weakness [Unknown]
  - Haematoma [Unknown]
  - Weight decreased [Unknown]
  - Fall [Unknown]
  - Wound [Unknown]
  - Aggression [Unknown]
  - Contusion [Unknown]
  - General physical health deterioration [Unknown]
  - Loss of personal independence in daily activities [Unknown]
  - Oedema peripheral [Unknown]
  - Walking aid user [Unknown]
  - Haematuria [Unknown]
  - Incontinence [Unknown]
  - General physical condition abnormal [Unknown]
  - Incision site impaired healing [Unknown]
  - Off label use [Unknown]
  - Inappropriate schedule of product administration [Unknown]

NARRATIVE: CASE EVENT DATE: 20210101
